FAERS Safety Report 10377725 (Version 5)
Quarter: 2015Q3

REPORT INFORMATION
  Report Type: Spontaneous
  Country: US (occurrence: US)
  Receive Date: 20140812
  Receipt Date: 20150806
  Transmission Date: 20151125
  Serious: Yes (Hospitalization, Other)
  Sender: FDA-Public Use
  Company Number: US-ASTRAZENECA-2013SE78699

PATIENT
  Age: 960 Month
  Sex: Female
  Weight: 44.5 kg

DRUGS (15)
  1. LIPITOR [Concomitant]
     Active Substance: ATORVASTATIN CALCIUM
     Indication: BLOOD CHOLESTEROL INCREASED
     Dosage: 10 MG, DAILY (AT NIGHT)
     Route: 048
     Dates: start: 1996
  2. CEFDINIR. [Concomitant]
     Active Substance: CEFDINIR
     Route: 048
  3. AZITHROMYCIN [Concomitant]
     Active Substance: AZITHROMYCIN ANHYDROUS
  4. AMOX K CLAV [Concomitant]
     Indication: PNEUMONIA
     Route: 048
     Dates: start: 20131021
  5. FLOVENT [Concomitant]
     Active Substance: FLUTICASONE PROPIONATE
  6. ACETAMINOPHEN. [Concomitant]
     Active Substance: ACETAMINOPHEN
  7. PREDNISONE. [Concomitant]
     Active Substance: PREDNISONE
  8. LORAZEPAM. [Concomitant]
     Active Substance: LORAZEPAM
     Indication: SLEEP DISORDER
     Route: 048
  9. ALBUTEROL. [Concomitant]
     Active Substance: ALBUTEROL
     Dosage: QID
  10. MUCINEX [Concomitant]
     Active Substance: GUAIFENESIN
     Indication: INCREASED BRONCHIAL SECRETION
     Dosage: UNKNOWN, AS REQUIRED
     Dates: start: 20131007
  11. SYMBICORT [Suspect]
     Active Substance: BUDESONIDE\FORMOTEROL FUMARATE DIHYDRATE
     Indication: CHRONIC OBSTRUCTIVE PULMONARY DISEASE
     Dosage: 160/4.5 MCG (320 UG), 2 PUFFS, TWO TIMES A DAY
     Route: 055
     Dates: start: 20130923
  12. TUDORZA PRESSAIR [Suspect]
     Active Substance: ACLIDINIUM BROMIDE
     Indication: CHRONIC OBSTRUCTIVE PULMONARY DISEASE
     Dosage: 1 PUFF, TWO TIMES A DAY
     Route: 055
     Dates: start: 20130924, end: 2015
  13. LEVOFLOXACIN. [Concomitant]
     Active Substance: LEVOFLOXACIN
     Indication: PNEUMONIA
     Route: 048
     Dates: start: 20130928, end: 20131020
  14. LORAZEPAM. [Concomitant]
     Active Substance: LORAZEPAM
     Indication: RELAXATION THERAPY
     Route: 048
  15. SPIRIVA [Concomitant]
     Active Substance: TIOTROPIUM BROMIDE MONOHYDRATE
     Dates: start: 2013

REACTIONS (22)
  - Chest X-ray abnormal [Unknown]
  - Painful respiration [Recovering/Resolving]
  - Memory impairment [Not Recovered/Not Resolved]
  - Increased bronchial secretion [Not Recovered/Not Resolved]
  - Retching [Unknown]
  - Drug dose omission [Unknown]
  - Decreased appetite [Unknown]
  - Dizziness [Recovered/Resolved]
  - Hypophagia [Unknown]
  - Vomiting [Recovered/Resolved]
  - Pulmonary mass [Unknown]
  - Hyperhidrosis [Unknown]
  - Diarrhoea [Recovered/Resolved]
  - Weight decreased [Unknown]
  - Weight increased [Unknown]
  - Pain [Recovering/Resolving]
  - Thrombosis [Unknown]
  - Hunger [Unknown]
  - Rash [Unknown]
  - Non-small cell lung cancer [Unknown]
  - Pneumonia [Unknown]
  - Back pain [Recovering/Resolving]

NARRATIVE: CASE EVENT DATE: 201305
